FAERS Safety Report 9246803 (Version 2)
Quarter: 2013Q2

REPORT INFORMATION
  Report Type: Spontaneous
  Country: US (occurrence: US)
  Receive Date: 20130422
  Receipt Date: 20130426
  Transmission Date: 20140414
  Serious: No
  Sender: FDA-Public Use
  Company Number: US-PFIZER INC-2013120773

PATIENT
  Age: 68 Year
  Sex: Male
  Weight: 79.37 kg

DRUGS (2)
  1. VIAGRA [Suspect]
     Indication: PROSTATIC DISORDER
     Dosage: 100 MG, AS NEEDED
     Route: 048
  2. CRESTOR [Concomitant]
     Indication: BLOOD CHOLESTEROL INCREASED
     Dosage: 10 MG, 1X/DAY

REACTIONS (3)
  - Drug ineffective [Unknown]
  - Dyspepsia [Recovered/Resolved]
  - Cyanopsia [Recovered/Resolved]
